FAERS Safety Report 6071063-5 (Version None)
Quarter: 2009Q1

REPORT INFORMATION
  Report Type: 
  Country: None (occurrence: None)
  Receive Date: 20090209
  Receipt Date: 20080715
  Transmission Date: 20090719
  Serious: No
  Sender: FDA-Public Use
  Company Number: A0738930A

PATIENT

DRUGS (1)
  1. PAXIL CR [Suspect]

REACTIONS (5)
  - ANXIETY [None]
  - INSOMNIA [None]
  - RESTLESSNESS [None]
  - SEXUAL DYSFUNCTION [None]
  - WEIGHT INCREASED [None]
